FAERS Safety Report 12072150 (Version 1)
Quarter: 2016Q1

REPORT INFORMATION
  Report Type: Spontaneous
  Country: US (occurrence: US)
  Receive Date: 20160212
  Receipt Date: 20160212
  Transmission Date: 20160526
  Serious: No
  Sender: FDA-Public Use
  Company Number: US-BAYER-2016-027463

PATIENT
  Age: 54 Year
  Sex: Female
  Weight: 71.66 kg

DRUGS (1)
  1. MIRALAX [Suspect]
     Active Substance: POLYETHYLENE GLYCOL 3350
     Indication: CONSTIPATION
     Dosage: 1 DF, FIRST: QD, THEN USED OCCASIONALLY, THEN QD AGAIN
     Route: 048
     Dates: start: 2008

REACTIONS (3)
  - Product use issue [None]
  - Product use issue [None]
  - Drug ineffective [None]

NARRATIVE: CASE EVENT DATE: 2008
